FAERS Safety Report 7397805-4 (Version None)
Quarter: 2011Q2

REPORT INFORMATION
  Report Type: 
  Country: None (occurrence: None)
  Receive Date: 20110406
  Receipt Date: 20110329
  Transmission Date: 20111010
  Serious: Yes (Life-Threatening)
  Sender: FDA-Public Use
  Company Number: JP-JNJFOC-20090809393

PATIENT
  Sex: Female
  Weight: 65 kg

DRUGS (12)
  1. PYDOXAL [Concomitant]
     Indication: PROPHYLAXIS
     Route: 048
  2. FAROM [Concomitant]
     Route: 048
  3. BETAMETHASONE [Concomitant]
     Indication: PROPHYLAXIS
     Route: 048
  4. FLUMARIN [Concomitant]
     Route: 042
  5. DOXIL [Suspect]
     Indication: OVARIAN CANCER RECURRENT
     Dosage: CYCLE 2
     Route: 042
  6. VITANEURIN [Concomitant]
     Indication: PROPHYLAXIS
     Route: 048
  7. DOXIL [Suspect]
     Dosage: CYCLE 1
     Route: 042
  8. MAGMITT [Concomitant]
     Indication: PROPHYLAXIS
     Route: 048
  9. BIOFERMIN [Concomitant]
     Route: 048
  10. TERRANAS [Concomitant]
     Route: 048
  11. ZOFRAN [Concomitant]
     Indication: NAUSEA
     Route: 042
  12. NEUTROGIN [Concomitant]
     Indication: WHITE BLOOD CELL COUNT DECREASED
     Route: 058

REACTIONS (2)
  - PLATELET COUNT DECREASED [None]
  - PNEUMONIA [None]
